FAERS Safety Report 17415817 (Version 2)
Quarter: 2020Q2

REPORT INFORMATION
  Report Type: Report from Study
  Country: US (occurrence: US)
  Receive Date: 20200213
  Receipt Date: 20200610
  Transmission Date: 20200713
  Serious: Yes (Hospitalization)
  Sender: FDA-Public Use
  Company Number: US-ACTELION-A-NJ2013-86609

PATIENT
  Age: 67 Year
  Sex: Female
  Weight: 86.17 kg

DRUGS (6)
  1. COUMADIN [Concomitant]
     Active Substance: WARFARIN SODIUM
  2. TRACLEER [Suspect]
     Active Substance: BOSENTAN
     Dosage: UNK
     Route: 048
  3. TRACLEER [Suspect]
     Active Substance: BOSENTAN
     Dosage: 125 MG, BID
     Route: 048
     Dates: start: 20080513
  4. ELIQUIS [Concomitant]
     Active Substance: APIXABAN
  5. SILDENAFIL. [Concomitant]
     Active Substance: SILDENAFIL
  6. TRACLEER [Suspect]
     Active Substance: BOSENTAN
     Indication: PULMONARY HYPERTENSION
     Dosage: 125 MG, BID
     Route: 048

REACTIONS (15)
  - Chills [Unknown]
  - Dizziness [Unknown]
  - Tremor [Unknown]
  - Headache [Unknown]
  - Presyncope [Unknown]
  - Dizziness postural [Unknown]
  - Pruritus [Unknown]
  - Cerebral haemorrhage [Unknown]
  - Skin laceration [Unknown]
  - Hypotension [Unknown]
  - Heart rate decreased [Unknown]
  - Syncope [Unknown]
  - Fall [Unknown]
  - Vitiligo [Unknown]
  - Hypophagia [Unknown]

NARRATIVE: CASE EVENT DATE: 20190102
